FAERS Safety Report 7960903-8 (Version None)
Quarter: 2011Q4

REPORT INFORMATION
  Report Type: 
  Country: None (occurrence: None)
  Receive Date: 20111201
  Receipt Date: 20111116
  Transmission Date: 20120403
  Serious: Yes (Disabling, Other)
  Sender: FDA-Public Use
  Company Number: 2010AL002642

PATIENT
  Sex: Female

DRUGS (25)
  1. METOCLOPRAMIDE [Suspect]
     Dosage: 10 MG;PO
     Route: 048
     Dates: start: 20051024, end: 20060824
  2. FUROSEMIDE [Concomitant]
  3. PREDNISONE TAB [Concomitant]
  4. ACTONEL [Concomitant]
  5. OYSCO [Concomitant]
  6. PROCHLORPERAZINE [Concomitant]
  7. XALATAN [Concomitant]
  8. CEFADROXIL [Concomitant]
  9. OMEPRAZOLE [Concomitant]
  10. TRAMADOL HCL [Concomitant]
  11. LIPITOR [Concomitant]
  12. LISINOPRIL [Concomitant]
  13. ZOLOFT [Concomitant]
  14. LYRICA [Concomitant]
  15. MIRTAZAPINE [Concomitant]
  16. AMOXICILLIN [Concomitant]
  17. ATENOLOL [Concomitant]
  18. FLUCONAZOLE [Concomitant]
  19. PANAFIL [Concomitant]
  20. PROPOXYPHENE NAPSYLATE AND ACETAMINOPHEN [Concomitant]
  21. CLOPIDOGREL [Concomitant]
  22. AMITRIPTYLINE HCL [Concomitant]
  23. INSULIN [Concomitant]
  24. NYSTOP [Concomitant]
  25. POTASSIUM CHLORIDE [Concomitant]

REACTIONS (8)
  - TARDIVE DYSKINESIA [None]
  - DYSKINESIA [None]
  - PAIN [None]
  - DEFORMITY [None]
  - EXTRAPYRAMIDAL DISORDER [None]
  - ACTIVITIES OF DAILY LIVING IMPAIRED [None]
  - NERVOUS SYSTEM DISORDER [None]
  - MENTAL DISORDER [None]
